FAERS Safety Report 4406481-1 (Version None)
Quarter: 2004Q3

REPORT INFORMATION
  Report Type: 
  Country: None (occurrence: None)
  Receive Date: 20040715
  Receipt Date: 20040709
  Transmission Date: 20050211
  Serious: Yes (Hospitalization)
  Sender: FDA-Public Use
  Company Number: 2004-07-0315

PATIENT
  Age: 80 Year
  Sex: Female

DRUGS (2)
  1. GENTALLINE (GENTAMICIN SULFATE) INJECTABLE SOLUTION [Suspect]
     Indication: POSTOPERATIVE INFECTION
     Dosage: INTRAMUSCULAR
     Route: 030
  2. ANTIBIOTIC [Concomitant]

REACTIONS (5)
  - BALANCE DISORDER [None]
  - DEAFNESS [None]
  - INNER EAR DISORDER [None]
  - RENAL FAILURE [None]
  - VESTIBULAR DISORDER [None]
